FAERS Safety Report 10244938 (Version 2)
Quarter: 2014Q2

REPORT INFORMATION
  Report Type: Spontaneous
  Country: US (occurrence: US)
  Receive Date: 20140618
  Receipt Date: 20140618
  Transmission Date: 20141212
  Serious: No
  Sender: FDA-Public Use
  Company Number: US-GALDERMA-US14000938

PATIENT
  Age: 50 Year
  Sex: Female

DRUGS (7)
  1. MIRVASO (BRIMONIDINE) TOPICAL GEL, 0.33% [Suspect]
     Indication: ROSACEA
     Dosage: 0.33%
     Route: 061
     Dates: start: 20140222, end: 20140307
  2. METRONIDAZOLE (METRONIDAZOLE) [Concomitant]
     Indication: ROSACEA
     Route: 061
     Dates: start: 201402
  3. FINACEA [Concomitant]
     Indication: ROSACEA
     Route: 061
     Dates: end: 20140224
  4. FINACEA [Concomitant]
     Route: 061
     Dates: start: 20140224
  5. PETER THOMAS ROTH ANTI AGING CLEANSER [Concomitant]
     Indication: THERAPEUTIC SKIN CARE TOPICAL
     Route: 061
  6. SKINCEUTICALS EMOILIENT MOISTURIZER [Concomitant]
     Indication: DRY SKIN PROPHYLAXIS
     Route: 061
  7. TARTE-AMAZONEAN CLAY BB TINTED MAKEUP [Concomitant]
     Route: 061

REACTIONS (8)
  - Urticaria [Recovered/Resolved]
  - Swelling face [Recovered/Resolved]
  - Dermatitis contact [Recovered/Resolved]
  - Erythema [Recovered/Resolved]
  - Flushing [Recovered/Resolved]
  - Skin burning sensation [Recovered/Resolved]
  - Feeling hot [Recovered/Resolved]
  - Skin irritation [Recovered/Resolved]
